FAERS Safety Report 20532699 (Version 1)
Quarter: 2022Q1

REPORT INFORMATION
  Report Type: Spontaneous
  Country: US (occurrence: US)
  Receive Date: 20220301
  Receipt Date: 20220301
  Transmission Date: 20220424
  Serious: Yes (Other)
  Sender: FDA-Public Use
  Company Number: US-PFIZER INC-202101798527

PATIENT
  Age: 39 Year
  Sex: Female

DRUGS (2)
  1. XELJANZ [Suspect]
     Active Substance: TOFACITINIB CITRATE
     Indication: Colitis ulcerative
     Dosage: 10 MG, 2X/DAY
     Route: 048
     Dates: start: 20211208
  2. LIALDA [Concomitant]
     Active Substance: MESALAMINE
     Dosage: UNK
     Dates: end: 20220119

REACTIONS (6)
  - Haematochezia [Unknown]
  - Therapeutic product effect incomplete [Unknown]
  - Product dose omission in error [Unknown]
  - Headache [Recovering/Resolving]
  - Flatulence [Unknown]
  - Back pain [Unknown]

NARRATIVE: CASE EVENT DATE: 20211208
